FAERS Safety Report 9564810 (Version 1)
Quarter: 2013Q3

REPORT INFORMATION
  Report Type: Spontaneous
  Country: US (occurrence: US)
  Receive Date: 20130930
  Receipt Date: 20130930
  Transmission Date: 20140515
  Serious: No
  Sender: FDA-Public Use
  Company Number: US-TEVA-433303USA

PATIENT
  Age: 34 Year
  Sex: Female
  Weight: 130.3 kg

DRUGS (4)
  1. PARAGARD 380A [Suspect]
     Indication: CONTRACEPTION
     Route: 015
     Dates: start: 20130711, end: 20130904
  2. VALTREX [Concomitant]
  3. METFORMIN [Concomitant]
  4. DIURETICS [Concomitant]

REACTIONS (1)
  - Device expulsion [Recovered/Resolved]
